FAERS Safety Report 19737882 (Version 1)
Quarter: 2021Q3

REPORT INFORMATION
  Report Type: Spontaneous
  Country: US (occurrence: US)
  Receive Date: 20210820
  Receipt Date: 20210820
  Transmission Date: 20211014
  Serious: No
  Sender: FDA-Public Use
  Company Number: None

PATIENT
  Age: 23 Month
  Sex: Female

DRUGS (1)
  1. VIGABATRIN POWDER 500MG CIPLA USA [Suspect]
     Active Substance: VIGABATRIN
     Indication: EPILEPSY
     Route: 048
     Dates: start: 20201015

REACTIONS (2)
  - Wrong technique in product usage process [None]
  - Product communication issue [None]

NARRATIVE: CASE EVENT DATE: 20201015
